FAERS Safety Report 21576213 (Version 5)
Quarter: 2022Q4

REPORT INFORMATION
  Report Type: Report from Study
  Country: US (occurrence: US)
  Receive Date: 20221110
  Receipt Date: 20221213
  Transmission Date: 20230113
  Serious: Yes (Hospitalization)
  Sender: FDA-Public Use
  Company Number: US-ABBVIE-4194172

PATIENT
  Age: 66 Year
  Sex: Female

DRUGS (4)
  1. VENCLEXTA [Suspect]
     Active Substance: VENETOCLAX
     Indication: B-cell small lymphocytic lymphoma
     Route: 048
     Dates: start: 20221021
  2. VENCLEXTA [Suspect]
     Active Substance: VENETOCLAX
     Indication: B-cell small lymphocytic lymphoma
     Route: 048
     Dates: start: 202210
  3. VENCLEXTA [Suspect]
     Active Substance: VENETOCLAX
     Indication: B-cell small lymphocytic lymphoma
     Route: 048
  4. VENCLEXTA [Suspect]
     Active Substance: VENETOCLAX
     Indication: B-cell small lymphocytic lymphoma
     Route: 048
     Dates: start: 20221021

REACTIONS (9)
  - Evans syndrome [Unknown]
  - Platelet count decreased [Unknown]
  - Insomnia [Unknown]
  - Gastroenteritis salmonella [Unknown]
  - Illness [Unknown]
  - Full blood count abnormal [Unknown]
  - Off label use [Unknown]
  - Respiratory syncytial virus infection [Unknown]
  - Platelet disorder [Unknown]

NARRATIVE: CASE EVENT DATE: 20221001
